FAERS Safety Report 12779750 (Version 7)
Quarter: 2020Q3

REPORT INFORMATION
  Report Type: Spontaneous
  Country: US (occurrence: US)
  Receive Date: 20160926
  Receipt Date: 20200708
  Transmission Date: 20201102
  Serious: Yes (Hospitalization, Other)
  Sender: FDA-Public Use
  Company Number: US-PFIZER INC-2016444436

PATIENT
  Age: 54 Year
  Sex: Male
  Weight: 99.34 kg

DRUGS (16)
  1. TRACLEER [Concomitant]
     Active Substance: BOSENTAN
     Indication: PULMONARY ARTERIAL HYPERTENSION
     Dosage: 125 MG, 2X/DAY
     Dates: start: 2007
  2. REVATIO [Suspect]
     Active Substance: SILDENAFIL CITRATE
     Indication: PULMONARY ARTERIAL HYPERTENSION
     Dosage: 20 MG, 3X/DAY
     Dates: start: 2014
  3. DEMEROL [Concomitant]
     Active Substance: MEPERIDINE HYDROCHLORIDE
     Indication: PAIN
     Dosage: 50 MG, 3X/DAY
  4. SPIRONOLACTONE. [Concomitant]
     Active Substance: SPIRONOLACTONE
     Dosage: 50 MG, DAILY
     Route: 048
  5. SPIRIVA REFILL [Concomitant]
     Active Substance: TIOTROPIUM BROMIDE
     Dosage: 1X/DAY, 2 INHALATIONS
     Route: 045
  6. SYMBICORT [Concomitant]
     Active Substance: BUDESONIDE\FORMOTEROL FUMARATE DIHYDRATE
     Dosage: 2 PUFFS, 2X/DAY, 160/4.5
  7. POTASSIUM [Concomitant]
     Active Substance: POTASSIUM
     Dosage: 40 MEQ, 1X/DAY
  8. PRILOSEC [Concomitant]
     Active Substance: OMEPRAZOLE MAGNESIUM
     Dosage: 40 MG, 1X/DAY
  9. TOPROL XL [Concomitant]
     Active Substance: METOPROLOL SUCCINATE
     Dosage: 25 MG, 1X/DAY, WITH FOOD (MORNING)
  10. REVATIO [Suspect]
     Active Substance: SILDENAFIL CITRATE
     Dosage: 80 MG, 3X/DAY
     Route: 048
  11. COUMADIN [Concomitant]
     Active Substance: WARFARIN SODIUM
     Dosage: 7 MG, DAILY
  12. REVATIO [Suspect]
     Active Substance: SILDENAFIL CITRATE
     Indication: PULMONARY HYPERTENSION
     Dosage: 40 MG, 3X/DAY
  13. ALBUTEROL. [Concomitant]
     Active Substance: ALBUTEROL
     Dosage: 4 PUFFS DAILY IF NEEDED (RARELY)
     Route: 045
  14. VALIUM [Concomitant]
     Active Substance: DIAZEPAM
     Indication: TREMOR
     Dosage: 10 MG, AS NEEDED, (1 TABLET TWICE DAILY)
  15. LASIX [Concomitant]
     Active Substance: FUROSEMIDE
     Dosage: 40 MG, DAILY
  16. TRACLEER [Concomitant]
     Active Substance: BOSENTAN
     Dosage: UNK
     Dates: start: 2008

REACTIONS (8)
  - Condition aggravated [Unknown]
  - Therapeutic response unexpected [Not Recovered/Not Resolved]
  - Cardiac failure congestive [Unknown]
  - Staphylococcal infection [Unknown]
  - Pulmonary hypertension [Unknown]
  - Product use issue [Unknown]
  - Pre-existing condition improved [Not Recovered/Not Resolved]
  - Headache [Not Recovered/Not Resolved]

NARRATIVE: CASE EVENT DATE: 2014
